FAERS Safety Report 9133271 (Version 1)
Quarter: 2013Q1

REPORT INFORMATION
  Report Type: Spontaneous
  Country: CA (occurrence: CA)
  Receive Date: 20130126
  Receipt Date: 20130126
  Transmission Date: 20140127
  Serious: Yes (Life-Threatening, Other)
  Sender: FDA-Public Use
  Company Number: CA-ROXANE LABORATORIES, INC.-2013-RO-00123RO

PATIENT
  Age: 67 Year
  Sex: Female

DRUGS (8)
  1. PREDNISONE [Suspect]
     Indication: LUPUS NEPHRITIS
     Route: 048
  2. PREDNISONE [Suspect]
     Indication: GLOMERULONEPHRITIS RAPIDLY PROGRESSIVE
  3. CYCLOPHOSPHAMIDE [Suspect]
     Indication: LUPUS NEPHRITIS
     Route: 042
  4. CYCLOPHOSPHAMIDE [Suspect]
     Indication: GLOMERULONEPHRITIS RAPIDLY PROGRESSIVE
  5. METHYLPREDNISOLONE [Suspect]
     Indication: LUPUS NEPHRITIS
     Dosage: 1500 MG
     Route: 042
  6. METHYLPREDNISOLONE [Suspect]
     Indication: GLOMERULONEPHRITIS RAPIDLY PROGRESSIVE
  7. METFORMIN [Concomitant]
     Dosage: 500 MG
  8. HYDROCHLOROTHIAZIDE [Concomitant]
     Dosage: 12.5 MG

REACTIONS (4)
  - Cytomegalovirus colitis [Recovered/Resolved]
  - Deep vein thrombosis [Not Recovered/Not Resolved]
  - Dehydration [Unknown]
  - Hypotension [Unknown]
